FAERS Safety Report 15533223 (Version 1)
Quarter: 2018Q4

REPORT INFORMATION
  Report Type: Spontaneous
  Country: US (occurrence: US)
  Receive Date: 20181019
  Receipt Date: 20181019
  Transmission Date: 20190205
  Serious: Yes (Other)
  Sender: FDA-Public Use
  Company Number: US-SA-2018SA168406

PATIENT
  Age: 56 Year
  Sex: Female
  Weight: 52.16 kg

DRUGS (9)
  1. RECLAST [Concomitant]
     Active Substance: ZOLEDRONIC ACID
  2. TAXOTERE [Suspect]
     Active Substance: DOCETAXEL
     Dosage: 110 UNK
     Route: 042
     Dates: start: 20130222, end: 20130222
  3. XYZAL [Concomitant]
     Active Substance: LEVOCETIRIZINE DIHYDROCHLORIDE
  4. CAMBIA [Concomitant]
     Active Substance: DICLOFENAC POTASSIUM
  5. AMLODIPINE [Concomitant]
     Active Substance: AMLODIPINE BESYLATE
  6. LIPITOR [Concomitant]
     Active Substance: ATORVASTATIN CALCIUM
  7. CALCIUM [Concomitant]
     Active Substance: CALCIUM
  8. TAXOTERE [Suspect]
     Active Substance: DOCETAXEL
     Indication: BREAST CANCER
     Dosage: 110 MG, Q3W
     Route: 042
     Dates: start: 20130110, end: 20130110
  9. CYCLOPHOSPHAMIDE. [Concomitant]
     Active Substance: CYCLOPHOSPHAMIDE

REACTIONS (1)
  - Alopecia [Recovering/Resolving]

NARRATIVE: CASE EVENT DATE: 2013
